FAERS Safety Report 7601201-1 (Version None)
Quarter: 2011Q3

REPORT INFORMATION
  Report Type: 
  Country: None (occurrence: None)
  Receive Date: 20110711
  Receipt Date: 20110701
  Transmission Date: 20111222
  Serious: Yes (Hospitalization)
  Sender: FDA-Public Use
  Company Number: JP-GLAXOSMITHKLINE-B0716461A

PATIENT
  Sex: Female
  Weight: 58 kg

DRUGS (12)
  1. PREDNISOLONE [Suspect]
     Indication: IDIOPATHIC THROMBOCYTOPENIC PURPURA
     Dosage: 20MG PER DAY
     Route: 048
  2. LEVOFLOXACIN [Concomitant]
     Route: 048
     Dates: start: 20110414, end: 20110416
  3. FRAGMIN [Concomitant]
     Route: 042
     Dates: start: 20110423, end: 20110502
  4. NOVOLIN 70/30 [Concomitant]
     Dosage: 40IU PER DAY
     Route: 058
  5. ISOSORBIDE DINITRATE [Concomitant]
     Dosage: 80MG PER DAY
     Route: 048
  6. PROMACTA [Suspect]
     Indication: IDIOPATHIC THROMBOCYTOPENIC PURPURA
     Dosage: 12.5MG PER DAY
     Route: 048
     Dates: start: 20110411, end: 20110423
  7. LOSARTAN POTASSIUM [Concomitant]
     Dosage: 50MG PER DAY
     Route: 048
  8. VICCILLIN [Concomitant]
     Route: 042
     Dates: start: 20110416, end: 20110422
  9. LEVEMIR [Concomitant]
     Route: 058
     Dates: start: 20110407
  10. SIGMART [Concomitant]
     Dosage: 20MG PER DAY
     Route: 048
  11. ADALAT [Concomitant]
     Dosage: 60MG PER DAY
     Route: 048
  12. BEZATOL SR [Concomitant]
     Dosage: 200MG PER DAY
     Route: 048

REACTIONS (1)
  - PULMONARY EMBOLISM [None]
